FAERS Safety Report 4517773-X (Version None)
Quarter: 2004Q4

REPORT INFORMATION
  Report Type: 
  Country: None (occurrence: None)
  Receive Date: 20041130
  Receipt Date: 20041119
  Transmission Date: 20050328
  Serious: Yes (Hospitalization)
  Sender: FDA-Public Use
  Company Number: 2004095874

PATIENT
  Sex: Female

DRUGS (2)
  1. ZITHROMAC (AZITHROMYCIN) [Suspect]
     Indication: ILL-DEFINED DISORDER
     Dosage: 500 MG (1 D) ORAL
     Route: 048
     Dates: start: 20041101, end: 20041103
  2. CARBOCISTEINE [Concomitant]

REACTIONS (2)
  - MARKEDLY REDUCED DIETARY INTAKE [None]
  - MOUTH ULCERATION [None]
